FAERS Safety Report 13136917 (Version 2)
Quarter: 2017Q1

REPORT INFORMATION
  Report Type: Spontaneous
  Country: US (occurrence: US)
  Receive Date: 20170123
  Receipt Date: 20170209
  Transmission Date: 20170428
  Serious: No
  Sender: FDA-Public Use
  Company Number: US-GLAXOSMITHKLINE-US2017007900

PATIENT
  Age: 68 Year
  Sex: Female

DRUGS (3)
  1. QVAR [Concomitant]
     Active Substance: BECLOMETHASONE DIPROPIONATE
     Indication: ASTHMA
  2. ARNUITY ELLIPTA [Suspect]
     Active Substance: FLUTICASONE FUROATE
     Indication: PRODUCT USED FOR UNKNOWN INDICATION
     Dosage: 1 PUFF(S), 1D
     Route: 055
     Dates: start: 201701
  3. QVAR [Concomitant]
     Active Substance: BECLOMETHASONE DIPROPIONATE
     Indication: ASTHMA
     Dosage: UNK
     Dates: start: 20161128, end: 201701

REACTIONS (6)
  - Dyspnoea [Unknown]
  - Reaction to drug excipients [Unknown]
  - Rash [Unknown]
  - Contraindicated product administered [Unknown]
  - Urticaria [Unknown]
  - Rash generalised [Unknown]

NARRATIVE: CASE EVENT DATE: 201701
